FAERS Safety Report 6744853-0 (Version None)
Quarter: 2010Q2

REPORT INFORMATION
  Report Type: 
  Country: None (occurrence: None)
  Receive Date: 20100527
  Receipt Date: 20100402
  Transmission Date: 20101027
  Serious: Yes (Other)
  Sender: FDA-Public Use
  Company Number: US-BRISTOL-MYERS SQUIBB COMPANY-15048150

PATIENT
  Sex: Female

DRUGS (3)
  1. ONGLYZA [Suspect]
  2. SEROQUEL [Suspect]
  3. NEXIUM [Suspect]

REACTIONS (1)
  - DIABETES MELLITUS [None]
